FAERS Safety Report 8722644 (Version 2)
Quarter: 2013Q4

REPORT INFORMATION
  Report Type: Spontaneous
  Country: US (occurrence: US)
  Receive Date: 20120814
  Receipt Date: 20131019
  Transmission Date: 20140711
  Serious: No
  Sender: FDA-Public Use
  Company Number: US-B.I. PHARMACEUTICALS,INC./RIDGEFIELD-2012-BP-18897BP

PATIENT
  Sex: Female

DRUGS (7)
  1. PRADAXA [Suspect]
     Indication: ATRIAL FIBRILLATION
     Dosage: 300 MG
     Route: 048
     Dates: start: 201105
  2. DIGOXIN [Concomitant]
     Indication: ATRIAL FIBRILLATION
     Route: 048
  3. DITROPAN [Concomitant]
     Indication: HYPERTONIC BLADDER
     Route: 048
  4. PAXIL [Concomitant]
     Indication: ANXIETY
     Route: 048
  5. KETOCONAZOLE CREAM [Concomitant]
     Indication: FUNGAL SKIN INFECTION
     Route: 061
  6. TYLENOL [Concomitant]
     Route: 048
  7. VITAMIN D [Concomitant]
     Indication: SUPPLEMENTATION THERAPY
     Route: 048

REACTIONS (4)
  - Obsessive thoughts [Not Recovered/Not Resolved]
  - Epistaxis [Unknown]
  - Contusion [Unknown]
  - Dyspepsia [Recovered/Resolved]
